FAERS Safety Report 6973128-X (Version None)
Quarter: 2010Q3

REPORT INFORMATION
  Report Type: 
  Country: None (occurrence: None)
  Receive Date: 20100909
  Receipt Date: 20100902
  Transmission Date: 20110219
  Serious: Yes (Hospitalization, Other)
  Sender: FDA-Public Use
  Company Number: BR-ABBOTT-10P-020-0641821-00

PATIENT
  Age: 34 Year
  Sex: Female

DRUGS (4)
  1. VALPAKINE [Suspect]
     Indication: CONVULSION
     Dosage: GASTRORESISTANT TAB
     Route: 048
     Dates: start: 20090101
  2. VALPAKINE [Suspect]
     Dosage: GASTRORESISTANT TAB
     Route: 048
  3. SERTRALINE HYDROCHLORIDE [Concomitant]
     Indication: PRODUCT USED FOR UNKNOWN INDICATION
  4. RIVOTRIL [Concomitant]
     Indication: PRODUCT USED FOR UNKNOWN INDICATION
     Dates: start: 20080101

REACTIONS (3)
  - CONVULSION [None]
  - DRUG INEFFECTIVE [None]
  - PRODUCT QUALITY ISSUE [None]
